FAERS Safety Report 6130627-0 (Version None)
Quarter: 2009Q1

REPORT INFORMATION
  Report Type: 
  Country: None (occurrence: None)
  Receive Date: 20090325
  Receipt Date: 20090316
  Transmission Date: 20090719
  Serious: Yes (Other)
  Sender: FDA-Public Use
  Company Number: GB-TEVA-188010ISR

PATIENT
  Age: 46 Year
  Sex: Female

DRUGS (1)
  1. AMITRIPTYLINE [Suspect]
     Indication: NEURALGIA
     Route: 048
     Dates: start: 20090302, end: 20090305

REACTIONS (1)
  - MYASTHENIA GRAVIS [None]
